FAERS Safety Report 21472212 (Version 1)
Quarter: 2022Q4

REPORT INFORMATION
  Report Type: Spontaneous
  Country: US (occurrence: US)
  Receive Date: 20221018
  Receipt Date: 20221018
  Transmission Date: 20230113
  Serious: Yes (Life-Threatening, Hospitalization)
  Sender: FDA-Public Use
  Company Number: US-MYLANLABS-2022M1115151

PATIENT
  Age: 19 Year
  Sex: Male

DRUGS (16)
  1. LIDOCAINE [Suspect]
     Active Substance: LIDOCAINE
     Indication: Ventricular tachyarrhythmia
     Dosage: UNK
     Route: 065
  2. MAGNESIUM SULFATE [Suspect]
     Active Substance: MAGNESIUM SULFATE
     Indication: Ventricular tachyarrhythmia
     Dosage: UNK
     Route: 065
  3. SILDENAFIL [Suspect]
     Active Substance: SILDENAFIL
     Indication: Portopulmonary hypertension
     Dosage: UNK; INTRAVENOUS (NOT SPECIFIED)
     Route: 042
  4. SILDENAFIL [Suspect]
     Active Substance: SILDENAFIL
     Dosage: 10 MILLIGRAM, Q8H,INTRAVENOUS (NOT SPECIFIED)
     Route: 042
  5. SILDENAFIL [Suspect]
     Active Substance: SILDENAFIL
     Indication: Portopulmonary hypertension
     Dosage: UNK, ENTERAL
     Route: 065
  6. EPINEPHRINE [Suspect]
     Active Substance: EPINEPHRINE
     Indication: Portopulmonary hypertension
     Dosage: UNK; LOW-DOSE EPINEPHRINE
     Route: 065
  7. ASCORBIC ACID [Suspect]
     Active Substance: ASCORBIC ACID
     Indication: Vitamin C deficiency
     Dosage: UNK; HIGH DOSE, PARENTERAL
     Route: 065
  8. ASCORBIC ACID [Suspect]
     Active Substance: ASCORBIC ACID
     Indication: Vitamin C deficiency
     Dosage: UNK; HIGH DOSE; ENTERAL
     Route: 065
  9. MILRINONE [Suspect]
     Active Substance: MILRINONE
     Indication: Portopulmonary hypertension
     Dosage: UNK
     Route: 065
  10. EPOPROSTENOL [Suspect]
     Active Substance: EPOPROSTENOL
     Indication: Portopulmonary hypertension
     Dosage: UNK, INTRAVENOUS (NOT SPECIFIED)
     Route: 042
  11. EPOPROSTENOL [Suspect]
     Active Substance: EPOPROSTENOL
     Dosage: 6NG/KG/MIN, INTRAVENOUS (NOT SPECIFIED)
     Route: 042
  12. MACITENTAN [Suspect]
     Active Substance: MACITENTAN
     Indication: Portopulmonary hypertension
     Dosage: 5 MILLIGRAM, QD (ENTERAL)
     Route: 065
  13. BASILIXIMAB [Concomitant]
     Active Substance: BASILIXIMAB
     Indication: Immunosuppressant drug therapy
     Dosage: 20 MILLIGRAM; ON DAY 0 AND DAY 4
     Route: 065
  14. METHYLPREDNISOLONE [Concomitant]
     Active Substance: METHYLPREDNISOLONE
     Indication: Immunosuppressant drug therapy
     Dosage: 500 MILLIGRAM; ON DAY 0 , TAPERED OFF OVER 4 WEEKS
     Route: 065
  15. TACROLIMUS [Concomitant]
     Active Substance: TACROLIMUS
     Indication: Immunosuppressant drug therapy
     Dosage: 0.5 MILLIGRAM, ONCE; ON DAY 0
     Route: 065
  16. SODIUM BICARBONATE [Concomitant]
     Active Substance: SODIUM BICARBONATE
     Indication: Product used for unknown indication
     Dosage: UNK
     Route: 065

REACTIONS (1)
  - Drug ineffective [Unknown]
